FAERS Safety Report 6543192-0 (Version None)
Quarter: 2010Q1

REPORT INFORMATION
  Report Type: 
  Country: None (occurrence: None)
  Receive Date: 20100120
  Receipt Date: 20100112
  Transmission Date: 20100710
  Serious: Yes (Hospitalization, Other)
  Sender: FDA-Public Use
  Company Number: ES-PFIZER INC-2010004264

PATIENT
  Age: 71 Year
  Sex: Female

DRUGS (8)
  1. NORVASC [Suspect]
     Dosage: UNK
     Route: 048
     Dates: start: 20080909
  2. TOPAMAX [Suspect]
     Dosage: UNK
     Route: 048
     Dates: start: 20060426, end: 20081016
  3. CIPRALEX [Suspect]
     Dosage: UNK
     Route: 048
     Dates: start: 20081007
  4. PANTOPRAZOLE SODIUM [Concomitant]
     Dosage: UNK
     Route: 048
     Dates: start: 20060426
  5. LORAMET [Concomitant]
     Dosage: UNK
     Route: 048
     Dates: start: 20080121
  6. SINTROM [Concomitant]
     Dosage: UNK
     Route: 048
     Dates: start: 20070514
  7. SUTRIL [Concomitant]
     Dosage: UNK
     Route: 048
     Dates: start: 20080520
  8. TRANXILIUM [Concomitant]
     Dosage: UNK
     Route: 048
     Dates: start: 20080121

REACTIONS (4)
  - DECREASED APPETITE [None]
  - DIZZINESS [None]
  - FATIGUE [None]
  - PULMONARY EMBOLISM [None]
